FAERS Safety Report 13239554 (Version 2)
Quarter: 2017Q1

REPORT INFORMATION
  Report Type: Spontaneous
  Country: JP (occurrence: JP)
  Receive Date: 20170216
  Receipt Date: 20170222
  Transmission Date: 20170428
  Serious: Yes (Hospitalization, Other)
  Sender: FDA-Public Use
  Company Number: JP-JNJFOC-20161209383

PATIENT
  Age: 0 Year
  Sex: Male
  Weight: 2.74 kg

DRUGS (1)
  1. RISPERDAL [Suspect]
     Active Substance: RISPERIDONE
     Indication: SCHIZOPHRENIA
     Route: 064

REACTIONS (7)
  - Drug withdrawal syndrome neonatal [Not Recovered/Not Resolved]
  - Selective eating disorder [Recovered/Resolved]
  - Exposure during breast feeding [Unknown]
  - Seizure [Recovered/Resolved]
  - Vomiting [Recovered/Resolved]
  - Foetal exposure during pregnancy [Unknown]
  - Irritability [Recovered/Resolved]

NARRATIVE: CASE EVENT DATE: 201611
